FAERS Safety Report 5968135-X (Version None)
Quarter: 2008Q4

REPORT INFORMATION
  Report Type: 
  Country: None (occurrence: None)
  Receive Date: 20081126
  Receipt Date: 20081117
  Transmission Date: 20090506
  Serious: No
  Sender: FDA-Public Use
  Company Number: US-B.I. PHARMACEUTICALS,INC./RIDGEFIELD-2008-BP-15933BP

PATIENT
  Age: 44 Year
  Sex: Female
  Weight: 95 kg

DRUGS (12)
  1. SPIRIVA [Suspect]
     Indication: CHRONIC OBSTRUCTIVE PULMONARY DISEASE
     Dosage: 18MCG
     Dates: start: 20080205, end: 20080226
  2. SPIRIVA [Suspect]
  3. ADVAIR HFA [Concomitant]
  4. COMBIVENT [Concomitant]
  5. CLONAZEPAM [Concomitant]
  6. CLONIDINE [Concomitant]
  7. EFFEXOR XR [Concomitant]
  8. FIORICET [Concomitant]
     Route: 048
  9. INDERAL LA [Concomitant]
     Dosage: 80MG
  10. TRAZODONE HCL [Concomitant]
  11. TRILEPTAL [Concomitant]
  12. ZANAFLEX [Concomitant]

REACTIONS (1)
  - RASH [None]
